FAERS Safety Report 16033767 (Version 2)
Quarter: 2019Q1

REPORT INFORMATION
  Report Type: Report from Study
  Country: IN (occurrence: IN)
  Receive Date: 20190305
  Receipt Date: 20190315
  Transmission Date: 20190418
  Serious: Yes (Hospitalization)
  Sender: FDA-Public Use
  Company Number: IN-ROCHE-2275156

PATIENT
  Age: 52 Year
  Sex: Female
  Weight: 58 kg

DRUGS (8)
  1. URSOCOL [Concomitant]
     Route: 048
     Dates: start: 20190226
  2. HUMALOG [Concomitant]
     Active Substance: INSULIN LISPRO
     Dosage: 14 UNITS
     Route: 058
     Dates: start: 20190226
  3. PLATBACK (UNK INGREDIENTS) [Concomitant]
     Route: 048
     Dates: start: 20190226
  4. OTRIVIN (INDIA) [Concomitant]
     Indication: NASAL DECONGESTION THERAPY
     Dosage: 5 DROPS
     Route: 045
     Dates: start: 20190226
  5. TRASTUZUMAB EMTANSINE [Suspect]
     Active Substance: ADO-TRASTUZUMAB EMTANSINE
     Indication: HER-2 POSITIVE BREAST CANCER
     Dosage: LOADING DOSE FOR 90 MINS?3.6 MG/KG INTRAVENOUSLY (IV) OVER 30-90 MINUTES ON DAY 1 OF 21 DAY CYCLE, R
     Route: 042
     Dates: start: 20181123
  6. THYRONORM [Concomitant]
     Active Substance: LEVOTHYROXINE
     Route: 048
     Dates: start: 20190226
  7. LANTUS [Concomitant]
     Active Substance: INSULIN GLARGINE
     Dosage: 36 UNITS
     Route: 058
     Dates: start: 20190226
  8. PANTOCID DSR [Concomitant]
     Route: 048
     Dates: start: 20190226

REACTIONS (1)
  - Diabetes mellitus inadequate control [Recovered/Resolved]

NARRATIVE: CASE EVENT DATE: 20190226
